FAERS Safety Report 18898581 (Version 4)
Quarter: 2021Q2

REPORT INFORMATION
  Report Type: Report from Study
  Country: US (occurrence: US)
  Receive Date: 20210216
  Receipt Date: 20210409
  Transmission Date: 20210717
  Serious: No
  Sender: FDA-Public Use
  Company Number: NVSC2021US026863

PATIENT
  Age: 61 Year
  Sex: Male

DRUGS (2)
  1. COSENTYX [Suspect]
     Active Substance: SECUKINUMAB
     Dosage: 300 MG, QMO
     Route: 058
  2. COSENTYX [Suspect]
     Active Substance: SECUKINUMAB
     Indication: PSORIASIS
     Dosage: 300 MG, QW (WEEKLY FOR 5 WEEKS, THEN EVERY 4 WEEKS)
     Route: 058
     Dates: start: 20201007

REACTIONS (4)
  - Therapeutic product effect decreased [Unknown]
  - Product dose omission issue [Unknown]
  - Skin exfoliation [Unknown]
  - Psoriasis [Unknown]

NARRATIVE: CASE EVENT DATE: 20210101
